FAERS Safety Report 9105285 (Version 2)
Quarter: 2013Q2

REPORT INFORMATION
  Report Type: Spontaneous
  Country: BR (occurrence: BR)
  Receive Date: 20130221
  Receipt Date: 20130401
  Transmission Date: 20140414
  Serious: Yes (Other)
  Sender: FDA-Public Use
  Company Number: PHHY2013BR015299

PATIENT
  Age: 70 Year
  Sex: Female

DRUGS (8)
  1. DIOVAN TRIPLE [Suspect]
     Indication: HYPERTENSION
     Dosage: 1 DF (160MG VALS, 5MG AMLO AND 12.5MG HCT), DAILY
     Route: 048
  2. DIOVAN TRIPLE [Suspect]
     Dosage: 2 DF, DAILY
     Route: 048
  3. ACETAMINOPHEN (PARACETAMOL),CAFFEINE [Suspect]
     Indication: MIGRAINE
     Dosage: 2 DF, DAILY (WHEN EXPERIENCED HEADACHE)
     Route: 048
  4. METILDOPA [Concomitant]
     Indication: HYPERTENSION
     Dosage: 2 DF, DAILY
     Route: 048
  5. ENALAPRIL [Concomitant]
     Indication: HYPERTENSION
     Dosage: 2 DF, DAILY
     Route: 048
  6. ADALAT [Concomitant]
     Indication: HYPERTENSION
     Dosage: (RARELY)
     Route: 060
  7. OSTEONUTRI [Concomitant]
     Indication: BONE DISORDER
     Dosage: 1 DF A DAY
     Route: 048
  8. SIMVASTATIN [Concomitant]
     Indication: BLOOD CHOLESTEROL
     Dosage: 1 DF AT NIGHT
     Route: 048

REACTIONS (4)
  - Blood pressure inadequately controlled [Not Recovered/Not Resolved]
  - Varicose vein [Recovering/Resolving]
  - Feeling hot [Recovering/Resolving]
  - Pain in extremity [Recovering/Resolving]
